FAERS Safety Report 9279990 (Version 1)
Quarter: 2013Q2

REPORT INFORMATION
  Report Type: Spontaneous
  Country: US (occurrence: None)
  Receive Date: 20130506
  Receipt Date: 20130506
  Transmission Date: 20140414
  Serious: Yes (Hospitalization)
  Sender: FDA-Public Use
  Company Number: None

PATIENT
  Age: 65 Year
  Sex: Female

DRUGS (1)
  1. WARFARIN [Suspect]
     Dosage: 8 AND 9 MG  ALTERNA
     Dates: end: 20121129

REACTIONS (3)
  - Faeces discoloured [None]
  - Abdominal pain [None]
  - Diarrhoea [None]
